FAERS Safety Report 20133860 (Version 3)
Quarter: 2022Q1

REPORT INFORMATION
  Report Type: Spontaneous
  Country: US (occurrence: None)
  Receive Date: 20211201
  Receipt Date: 20220101
  Transmission Date: 20220423
  Serious: Yes (Death)
  Sender: FDA-Public Use
  Company Number: US-ROCHE-2962922

PATIENT
  Age: 31 Year
  Sex: Male

DRUGS (1)
  1. EVRYSDI [Suspect]
     Active Substance: RISDIPLAM
     Indication: Spinal muscular atrophy
     Route: 050
     Dates: start: 20210719

REACTIONS (2)
  - Respiratory arrest [Fatal]
  - Obstructive airways disorder [Unknown]

NARRATIVE: CASE EVENT DATE: 20211118
